FAERS Safety Report 15650546 (Version 2)
Quarter: 2019Q1

REPORT INFORMATION
  Report Type: Spontaneous
  Country: PL (occurrence: PL)
  Receive Date: 20181123
  Receipt Date: 20190204
  Transmission Date: 20190417
  Serious: Yes (Death, Other)
  Sender: FDA-Public Use
  Company Number: PL-BRISTOL-MYERS SQUIBB COMPANY-BMS-2018-110332

PATIENT
  Age: 57 Year
  Sex: Female

DRUGS (1)
  1. NIVOLUMAB [Suspect]
     Active Substance: NIVOLUMAB
     Indication: CLEAR CELL RENAL CELL CARCINOMA
     Dosage: 3 MG/KG, Q2WK
     Route: 065
     Dates: start: 201611, end: 201703

REACTIONS (11)
  - Vena cava embolism [Unknown]
  - Dyspnoea [Unknown]
  - Rash [Unknown]
  - Pneumonitis [Unknown]
  - Death [Fatal]
  - Malignant neoplasm progression [Unknown]
  - Rash erythematous [Unknown]
  - Oedema [Unknown]
  - Tumour pseudoprogression [Unknown]
  - Blood thyroid stimulating hormone abnormal [Unknown]
  - General physical health deterioration [Recovering/Resolving]

NARRATIVE: CASE EVENT DATE: 201611
